FAERS Safety Report 7000702-7 (Version None)
Quarter: 2010Q3

REPORT INFORMATION
  Report Type: 
  Country: None (occurrence: None)
  Receive Date: 20100920
  Receipt Date: 20091130
  Transmission Date: 20110219
  Serious: Yes (Other)
  Sender: FDA-Public Use
  Company Number: US-ASTRAZENECA-2009SE13392

PATIENT
  Age: 576 Month
  Sex: Female
  Weight: 83.5 kg

DRUGS (2)
  1. SEROQUEL [Suspect]
     Indication: DEPRESSION
     Route: 048
     Dates: start: 20050801
  2. SEROQUEL [Suspect]
     Route: 048
     Dates: start: 20051213

REACTIONS (3)
  - DIABETIC KETOACIDOSIS [None]
  - GLUCOSE TOLERANCE IMPAIRED [None]
  - HYPOAESTHESIA [None]
